FAERS Safety Report 25778626 (Version 3)
Quarter: 2025Q3

REPORT INFORMATION
  Report Type: Report from Study
  Country: CA (occurrence: CA)
  Receive Date: 20250909
  Receipt Date: 20250925
  Transmission Date: 20251021
  Serious: No
  Sender: CURRAX PHARMACEUTICALS
  Company Number: CA-BAUSCH-BH-2025-017046

PATIENT
  Age: 70 Year
  Sex: Female

DRUGS (3)
  1. CONTRAVE [Suspect]
     Active Substance: BUPROPION HYDROCHLORIDE\NALTREXONE HYDROCHLORIDE
     Indication: Weight control
     Route: 048
     Dates: start: 202405
  2. CONTRAVE [Suspect]
     Active Substance: BUPROPION HYDROCHLORIDE\NALTREXONE HYDROCHLORIDE
     Route: 048
     Dates: end: 2025
  3. CONTRAVE [Suspect]
     Active Substance: BUPROPION HYDROCHLORIDE\NALTREXONE HYDROCHLORIDE
     Dosage: STRENGTH: 90/8 MG, 1.0 DOSAGE FORM (1 DOSAGE FORM, 1 IN 1 DAY) IN THE MORNING
     Route: 048
     Dates: start: 20250906

REACTIONS (1)
  - Intentional product use issue [Unknown]

NARRATIVE: CASE EVENT DATE: 20250101
